FAERS Safety Report 23406796 (Version 1)
Quarter: 2024Q1

REPORT INFORMATION
  Report Type: Spontaneous
  Country: US (occurrence: None)
  Receive Date: 20240115
  Receipt Date: 20240115
  Transmission Date: 20240410
  Serious: Yes (Other)
  Sender: FDA-Public Use
  Company Number: None

PATIENT
  Age: 63 Year
  Sex: Female

DRUGS (1)
  1. XDEMVY [Suspect]
     Active Substance: LOTILANER
     Indication: Demodex blepharitis
     Dosage: FREQUENCY : TWICE A DAY;?
     Route: 047
     Dates: start: 20231230

REACTIONS (1)
  - Eyelid thickening [None]

NARRATIVE: CASE EVENT DATE: 20240112
